FAERS Safety Report 5106754-3 (Version None)
Quarter: 2006Q3

REPORT INFORMATION
  Report Type: 
  Country: None (occurrence: None)
  Receive Date: 20060918
  Receipt Date: 20060908
  Transmission Date: 20061208
  Serious: Yes (Other)
  Sender: FDA-Public Use
  Company Number: US-MERCK-0609USA02017

PATIENT
  Sex: Female

DRUGS (2)
  1. COSOPT [Suspect]
     Indication: GLAUCOMA
     Route: 047
     Dates: start: 20060501
  2. XALATAN [Concomitant]
     Route: 065

REACTIONS (5)
  - CATARACT [None]
  - CATARACT OPERATION [None]
  - EYE DISORDER [None]
  - RETINAL ARTERY THROMBOSIS [None]
  - THROMBOSIS [None]
